FAERS Safety Report 9819081 (Version 2)
Quarter: 2014Q1

REPORT INFORMATION
  Report Type: Spontaneous
  Country: US (occurrence: US)
  Receive Date: 20140115
  Receipt Date: 20140115
  Transmission Date: 20141002
  Serious: Yes (Disabling)
  Sender: FDA-Public Use
  Company Number: US-GE HEALTHCARE MEDICAL DIAGNOSTICS-OSCN-PR-0802S-0066

PATIENT
  Sex: Female

DRUGS (3)
  1. MAGNEVIST [Suspect]
     Indication: ISCHAEMIA
     Route: 042
     Dates: start: 20050919, end: 20050919
  2. OMNISCAN [Suspect]
     Indication: TRANSPLANT EVALUATION
     Route: 042
     Dates: start: 20050412, end: 20050412
  3. OMNISCAN [Suspect]
     Indication: RENAL CYST
     Route: 042
     Dates: start: 20050919, end: 20050919

REACTIONS (1)
  - Nephrogenic systemic fibrosis [Not Recovered/Not Resolved]
